FAERS Safety Report 4824090-7 (Version None)
Quarter: 2005Q4

REPORT INFORMATION
  Report Type: 
  Country: None (occurrence: None)
  Receive Date: 20051108
  Receipt Date: 20051024
  Transmission Date: 20060501
  Serious: Yes (Other)
  Sender: FDA-Public Use
  Company Number: 2005SS000648

PATIENT
  Age: 32 Year
  Sex: Female

DRUGS (1)
  1. BOTULINUM TOXIN TYPE B (BOTULINUM TOXIN TYPE B) [Suspect]
     Indication: DYSTONIA
     Dosage: SEE IMAGE
     Route: 030

REACTIONS (3)
  - ACCOMMODATION DISORDER [None]
  - DRUG EFFECT DECREASED [None]
  - VISION BLURRED [None]
